FAERS Safety Report 5193987-3 (Version None)
Quarter: 2006Q4

REPORT INFORMATION
  Report Type: 
  Country: None (occurrence: None)
  Receive Date: 20061222
  Receipt Date: 20061212
  Transmission Date: 20070319
  Serious: No
  Sender: FDA-Public Use
  Company Number: 2006S1010730

PATIENT
  Age: 67 Year
  Sex: Female
  Weight: 86.1834 kg

DRUGS (9)
  1. LISINOPRIL [Suspect]
     Indication: HYPERTENSION
     Dosage: 20 MG;QD;PO
     Route: 048
     Dates: start: 20061110
  2. TIOTROPIUM BROMIDE (CON.) [Concomitant]
  3. BUDESONIDE (CON.) [Concomitant]
  4. MONTELUKAST (CON.) [Concomitant]
  5. BREVA (CON.) [Concomitant]
  6. FUROSEMIDE (CON.) [Concomitant]
  7. COLESEVELAM HYDROCHLORIDE (CON.) [Concomitant]
  8. OMEPRAZOLE (CON.) [Concomitant]
  9. PRAMIPEXOLE DIHYDROCHLORIDE (CON.) [Concomitant]

REACTIONS (2)
  - BLOOD PRESSURE INCREASED [None]
  - DRUG INEFFECTIVE [None]
